FAERS Safety Report 10867156 (Version 1)
Quarter: 2015Q1

REPORT INFORMATION
  Report Type: Spontaneous
  Country: US (occurrence: US)
  Receive Date: 20150225
  Receipt Date: 20150225
  Transmission Date: 20150721
  Serious: Yes (Other)
  Sender: FDA-Public Use
  Company Number: US-RB-073354-15

PATIENT
  Age: 87 Year
  Sex: Male

DRUGS (1)
  1. MUCINEX FAST-MAX SEVERE CONGESTION AND COUGH [Suspect]
     Active Substance: DEXTROMETHORPHAN HYDROBROMIDE\GUAIFENESIN\PHENYLEPHRINE HYDROCHLORIDE
     Indication: PRODUCT USED FOR UNKNOWN INDICATION
     Dosage: FREQUENCY OF USE: VARIOUS; TOOK A HALF DOSE ON 11-FEB-2015.
     Route: 065
     Dates: start: 20150208

REACTIONS (2)
  - Epistaxis [Unknown]
  - Somnolence [Unknown]

NARRATIVE: CASE EVENT DATE: 20150209
